FAERS Safety Report 20770959 (Version 5)
Quarter: 2022Q3

REPORT INFORMATION
  Report Type: Report from Study
  Country: DE (occurrence: DE)
  Receive Date: 20220429
  Receipt Date: 20220711
  Transmission Date: 20221026
  Serious: Yes (Life-Threatening)
  Sender: FDA-Public Use
  Company Number: DE-PFIZER INC-202200621371

PATIENT
  Age: 50 Year
  Sex: Male
  Weight: 98.6 kg

DRUGS (2)
  1. ABROCITINIB [Suspect]
     Active Substance: ABROCITINIB
     Indication: Dermatitis atopic
     Dosage: 200 MG, DAILY
     Route: 048
     Dates: start: 20190222, end: 20220425
  2. CANDESARTAN [Concomitant]
     Active Substance: CANDESARTAN
     Indication: Hypertension
     Dosage: 16 MG, 1X/DAY (1-0-0)
     Route: 048
     Dates: start: 20200715

REACTIONS (2)
  - Lymphopenia [Recovered/Resolved with Sequelae]
  - Condition aggravated [Recovered/Resolved with Sequelae]

NARRATIVE: CASE EVENT DATE: 20220421
